FAERS Safety Report 5381531-7 (Version None)
Quarter: 2007Q3

REPORT INFORMATION
  Report Type: 
  Country: None (occurrence: None)
  Receive Date: 20070709
  Receipt Date: 20070626
  Transmission Date: 20080115
  Serious: Yes (Hospitalization)
  Sender: FDA-Public Use
  Company Number: FR-BAYER-200610580BFR

PATIENT
  Age: 53 Year
  Sex: Female
  Weight: 61 kg

DRUGS (10)
  1. SORAFENIB [Suspect]
     Indication: METASTATIC MALIGNANT MELANOMA
     Dosage: TOTAL DAILY DOSE: 800 MG  UNIT DOSE: 400 MG
     Route: 048
     Dates: start: 20060426, end: 20060505
  2. SORAFENIB [Suspect]
     Dosage: TOTAL DAILY DOSE: 800 MG  UNIT DOSE: 400 MG
     Route: 048
     Dates: start: 20060508, end: 20060516
  3. SORAFENIB [Suspect]
     Dosage: TOTAL DAILY DOSE: 400 MG  UNIT DOSE: 200 MG
     Route: 048
     Dates: start: 20060531, end: 20060608
  4. SORAFENIB [Suspect]
     Dosage: TOTAL DAILY DOSE: 800 MG  UNIT DOSE: 400 MG
     Route: 048
     Dates: start: 20060517, end: 20060524
  5. SORAFENIB [Suspect]
     Dosage: TOTAL DAILY DOSE: 400 MG  UNIT DOSE: 200 MG
     Route: 048
     Dates: start: 20060622, end: 20060627
  6. DACARBAZINE [Suspect]
     Indication: METASTATIC MALIGNANT MELANOMA
     Dosage: UNIT DOSE: 1600 MG
     Route: 042
     Dates: start: 20060426, end: 20060426
  7. DACARBAZINE [Suspect]
     Dosage: UNIT DOSE: 1550 MG
     Route: 042
     Dates: start: 20060517, end: 20060517
  8. DACARBAZINE [Suspect]
     Dosage: UNIT DOSE: 1200 MG
     Route: 042
     Dates: start: 20060622, end: 20060622
  9. PERINDOPRIL ERBUMINE [Concomitant]
     Indication: UNEVALUABLE EVENT
  10. CETIRIZINE HCL [Concomitant]
     Indication: UNEVALUABLE EVENT

REACTIONS (2)
  - ABDOMINAL PAIN [None]
  - ASTHENIA [None]
